FAERS Safety Report 5565435-2 (Version None)
Quarter: 2007Q4

REPORT INFORMATION
  Report Type: 
  Country: None (occurrence: None)
  Receive Date: 20071218
  Receipt Date: 20071207
  Transmission Date: 20080405
  Serious: Yes (Other)
  Sender: FDA-Public Use
  Company Number: US-PFIZER INC-2007085094

PATIENT
  Sex: Male

DRUGS (3)
  1. CARDURA [Suspect]
  2. DIURETICS [Concomitant]
  3. LISINOPRIL [Concomitant]

REACTIONS (5)
  - ANGINA PECTORIS [None]
  - BLOOD PRESSURE FLUCTUATION [None]
  - CARDIAC VALVE DISEASE [None]
  - RASH [None]
  - VISION BLURRED [None]
